FAERS Safety Report 15391981 (Version 5)
Quarter: 2020Q2

REPORT INFORMATION
  Report Type: Spontaneous
  Country: US (occurrence: US)
  Receive Date: 20180917
  Receipt Date: 20200629
  Transmission Date: 20200713
  Serious: No
  Sender: FDA-Public Use
  Company Number: US-PFIZER INC-2018371401

PATIENT
  Age: 64 Year
  Sex: Male
  Weight: 81.65 kg

DRUGS (1)
  1. DILANTIN [Suspect]
     Active Substance: PHENYTOIN
     Indication: SEIZURE
     Dosage: 100 MG, SIX TIMES A DAY
     Route: 048
     Dates: start: 198908

REACTIONS (4)
  - Body height decreased [Unknown]
  - Product dispensing error [Unknown]
  - Intentional product misuse [Recovered/Resolved]
  - Drug ineffective [Unknown]

NARRATIVE: CASE EVENT DATE: 201807
